FAERS Safety Report 22636613 (Version 1)
Quarter: 2023Q2

REPORT INFORMATION
  Report Type: Spontaneous
  Country: US (occurrence: US)
  Receive Date: 20230623
  Receipt Date: 20230623
  Transmission Date: 20230721
  Serious: Yes (Other)
  Sender: FDA-Public Use
  Company Number: US-002147023-NVSC2023US142335

PATIENT
  Age: 26 Year
  Sex: Female

DRUGS (2)
  1. METHOTREXATE [Suspect]
     Active Substance: METHOTREXATE
     Indication: Prophylaxis against graft versus host disease
     Dosage: UNK
     Route: 065
  2. TACROLIMUS [Suspect]
     Active Substance: TACROLIMUS
     Indication: Prophylaxis against graft versus host disease
     Dosage: UNK
     Route: 065

REACTIONS (6)
  - Chronic graft versus host disease in eye [Unknown]
  - Chronic graft versus host disease in lung [Unknown]
  - Chronic graft versus host disease oral [Unknown]
  - Chronic graft versus host disease [Unknown]
  - Chronic graft versus host disease in skin [Unknown]
  - Product use in unapproved indication [Unknown]
